FAERS Safety Report 14405994 (Version 2)
Quarter: 2018Q2

REPORT INFORMATION
  Report Type: Spontaneous
  Country: US (occurrence: US)
  Receive Date: 20180118
  Receipt Date: 20180407
  Transmission Date: 20180711
  Serious: No
  Sender: FDA-Public Use
  Company Number: US-JNJFOC-20180105884

PATIENT
  Age: 61 Year
  Sex: Female
  Weight: 91.63 kg

DRUGS (2)
  1. RISPERDAL CONSTA [Suspect]
     Active Substance: RISPERIDONE
     Indication: SCHIZOPHRENIA
     Route: 030
     Dates: start: 201505
  2. VITAMIN B12 [Concomitant]
     Active Substance: CYANOCOBALAMIN
     Route: 030

REACTIONS (2)
  - Underdose [Unknown]
  - Device occlusion [Unknown]

NARRATIVE: CASE EVENT DATE: 20171205
